FAERS Safety Report 5075461-8 (Version None)
Quarter: 2006Q3

REPORT INFORMATION
  Report Type: 
  Country: None (occurrence: None)
  Receive Date: 20060809
  Receipt Date: 20060706
  Transmission Date: 20061208
  Serious: Yes (Other)
  Sender: FDA-Public Use
  Company Number: PHBS2006JP10317

PATIENT
  Age: 52 Year
  Sex: Male

DRUGS (7)
  1. NEORAL [Suspect]
     Indication: LIVER TRANSPLANT
     Dosage: 120 MG/DAY
     Route: 048
     Dates: start: 20041227
  2. PROGRAF [Concomitant]
     Indication: LIVER TRANSPLANT
     Dates: start: 20041201, end: 20041227
  3. CELLCEPT [Concomitant]
     Indication: LIVER TRANSPLANT
     Dosage: 1000 MG/DAY
     Route: 048
     Dates: start: 20041207
  4. OMEPRAZOLE [Concomitant]
     Dosage: 20 MG/DAY
     Route: 048
     Dates: start: 20041207
  5. ZEFFIX [Concomitant]
     Indication: HEPATITIS B
     Dosage: 100 MG/DAY
     Route: 048
     Dates: start: 20041207
  6. HEPSERA [Concomitant]
     Indication: HEPATITIS B
     Dosage: 10 MG/DAY
     Route: 048
     Dates: start: 20041207
  7. HEBSBULIN-IH [Concomitant]
     Indication: HEPATITIS B
     Route: 042
     Dates: start: 20060501

REACTIONS (3)
  - CONVULSION [None]
  - FALL [None]
  - LOSS OF CONSCIOUSNESS [None]
